FAERS Safety Report 8314953-2 (Version None)
Quarter: 2012Q2

REPORT INFORMATION
  Report Type: 
  Country: None (occurrence: None)
  Receive Date: 20120426
  Receipt Date: 20120420
  Transmission Date: 20120825
  Serious: Yes (Hospitalization, Other)
  Sender: FDA-Public Use
  Company Number: US-MERCK-1106USA00667

PATIENT
  Age: 75 Year
  Sex: Female
  Weight: 79 kg

DRUGS (4)
  1. LIBRAX [Concomitant]
     Indication: IRRITABLE BOWEL SYNDROME
     Route: 065
     Dates: start: 20060101, end: 20110101
  2. METOPROLOL [Concomitant]
     Route: 065
     Dates: start: 20070101
  3. ALENDRONATE SODIUM [Suspect]
     Indication: OSTEOPOROSIS
     Route: 048
     Dates: start: 20080301, end: 20100601
  4. FOSAMAX [Suspect]
     Indication: OSTEOPOROSIS
     Route: 048
     Dates: start: 20000118, end: 20110101

REACTIONS (28)
  - ARTHROPATHY [None]
  - INCISIONAL HERNIA [None]
  - BURSITIS [None]
  - OSTEOPENIA [None]
  - CAROTID BRUIT [None]
  - FEMUR FRACTURE [None]
  - BONE DISORDER [None]
  - ANKLE FRACTURE [None]
  - RENAL FAILURE CHRONIC [None]
  - HYPOMAGNESAEMIA [None]
  - FALL [None]
  - BREAST DISORDER [None]
  - CONSTIPATION [None]
  - ABSCESS INTESTINAL [None]
  - HYPOKALAEMIA [None]
  - LUMBAR RADICULOPATHY [None]
  - CONTUSION [None]
  - OSTEOARTHRITIS [None]
  - JEJUNAL PERFORATION [None]
  - DIVERTICULITIS [None]
  - ANXIETY [None]
  - CARDIAC MURMUR [None]
  - MUSCLE STRAIN [None]
  - IMPAIRED HEALING [None]
  - OVARIAN DISORDER [None]
  - APPENDIX DISORDER [None]
  - ANAEMIA POSTOPERATIVE [None]
  - BRADYCARDIA [None]
